FAERS Safety Report 8086432-1 (Version None)
Quarter: 2012Q1

REPORT INFORMATION
  Report Type: 
  Country: None (occurrence: None)
  Receive Date: 20120128
  Receipt Date: 20110510
  Transmission Date: 20120608
  Serious: Yes (Other)
  Sender: FDA-Public Use
  Company Number: US-ABBOTT-11P-163-0724860-00

PATIENT
  Age: 71 Year
  Sex: Female

DRUGS (2)
  1. HUMIRA [Suspect]
     Indication: RHEUMATOID ARTHRITIS
     Dates: start: 20100101, end: 20110501
  2. HUMIRA [Suspect]
     Dosage: Q WEEK THIS MONTH ONLY; THE RESUME QOW
     Dates: start: 20110501, end: 20110501

REACTIONS (3)
  - PAIN IN EXTREMITY [None]
  - CHOLECYSTECTOMY [None]
  - OEDEMA PERIPHERAL [None]
